FAERS Safety Report 26055254 (Version 1)
Quarter: 2025Q4

REPORT INFORMATION
  Report Type: Spontaneous
  Country: US (occurrence: US)
  Receive Date: 20251117
  Receipt Date: 20251117
  Transmission Date: 20260117
  Serious: Yes (Hospitalization, Other)
  Sender: NOVO NORDISK
  Company Number: US-NOVOPROD-1560579

PATIENT
  Age: 47 Year
  Sex: Female

DRUGS (1)
  1. NOVOLOG [Suspect]
     Active Substance: INSULIN ASPART
     Indication: Product used for unknown indication
     Dosage: 10 IU, TID
     Dates: start: 2010

REACTIONS (8)
  - Animal attack [Recovered/Resolved]
  - Brain injury [Recovered/Resolved]
  - Hand fracture [Recovered/Resolved]
  - Neck injury [Recovered/Resolved]
  - Uterine cancer [Recovered/Resolved]
  - Diplopia [Unknown]
  - Malaise [Unknown]
  - Renal disorder [Unknown]

NARRATIVE: CASE EVENT DATE: 20110101
